FAERS Safety Report 4515417-4 (Version None)
Quarter: 2004Q4

REPORT INFORMATION
  Report Type: 
  Country: None (occurrence: None)
  Receive Date: 20041126
  Receipt Date: 20041115
  Transmission Date: 20050328
  Serious: Yes (Other)
  Sender: FDA-Public Use
  Company Number: 2004US001404

PATIENT
  Sex: Female

DRUGS (1)
  1. ADENOSCAN [Suspect]
     Indication: SCAN MYOCARDIAL PERFUSION
     Dosage: 140.00 TOTAL DOSE, INTRAVENOUS
     Route: 042
     Dates: start: 20041104, end: 20041104

REACTIONS (9)
  - COMA [None]
  - ERYTHEMA [None]
  - EYE SWELLING [None]
  - MUSCULOSKELETAL STIFFNESS [None]
  - NAUSEA [None]
  - OXYGEN SATURATION DECREASED [None]
  - RETCHING [None]
  - SWELLING FACE [None]
  - THROAT TIGHTNESS [None]
